FAERS Safety Report 5237321-9 (Version None)
Quarter: 2007Q1

REPORT INFORMATION
  Report Type: 
  Country: None (occurrence: None)
  Receive Date: 20070213
  Receipt Date: 20070202
  Transmission Date: 20070707
  Serious: Yes (Other)
  Sender: FDA-Public Use
  Company Number: HQWYE448305FEB07

PATIENT
  Sex: Male

DRUGS (3)
  1. PROTONIX [Suspect]
     Indication: DYSPEPSIA
     Route: 048
     Dates: start: 20060801, end: 20061201
  2. PROTONIX [Suspect]
     Route: 048
     Dates: start: 20061201, end: 20070129
  3. VITAMINS [Concomitant]
     Dosage: UNKNOWN
     Route: 065

REACTIONS (4)
  - BURNING SENSATION [None]
  - HEADACHE [None]
  - RHABDOMYOLYSIS [None]
  - UNEVALUABLE EVENT [None]
